FAERS Safety Report 22303639 (Version 2)
Quarter: 2023Q2

REPORT INFORMATION
  Report Type: Report from Study
  Country: US (occurrence: US)
  Receive Date: 20230510
  Receipt Date: 20230620
  Transmission Date: 20230722
  Serious: Yes (Hospitalization)
  Sender: FDA-Public Use
  Company Number: US-ABBVIE-4760888

PATIENT
  Sex: Male

DRUGS (9)
  1. SKYRIZI [Suspect]
     Active Substance: RISANKIZUMAB-RZAA
     Indication: Crohn^s disease
     Dosage: 360MG/2.4ML ON BODY INJECTOR WITH PREFILLED CARTRIDGE ONCE EVERY 8 WEEKS AT WEEK 12.?FORM STRENGT...
     Route: 058
     Dates: start: 202303, end: 202305
  2. SKYRIZI [Suspect]
     Active Substance: RISANKIZUMAB-RZAA
     Dosage: 2ND INFUSION
     Route: 042
     Dates: start: 20221115
  3. SKYRIZI [Suspect]
     Active Substance: RISANKIZUMAB-RZAA
     Dosage: FORM STRENGTH: 360 MG
     Route: 058
     Dates: start: 202305
  4. SKYRIZI [Suspect]
     Active Substance: RISANKIZUMAB-RZAA
     Dosage: 1ST INFUSION
     Route: 042
     Dates: start: 20221018
  5. SKYRIZI [Suspect]
     Active Substance: RISANKIZUMAB-RZAA
     Dosage: 3RD INFUSION
     Route: 042
     Dates: start: 20221213
  6. SKYRIZI [Suspect]
     Active Substance: RISANKIZUMAB-RZAA
     Dates: start: 202306
  7. SKYRIZI [Suspect]
     Active Substance: RISANKIZUMAB-RZAA
     Indication: Crohn^s disease
     Dosage: 1ST INFUSION
     Route: 042
     Dates: start: 20221018
  8. SKYRIZI [Suspect]
     Active Substance: RISANKIZUMAB-RZAA
     Indication: Crohn^s disease
     Dosage: 2ND INFUSION
     Route: 042
     Dates: start: 20221115
  9. SKYRIZI [Suspect]
     Active Substance: RISANKIZUMAB-RZAA
     Indication: Crohn^s disease
     Dosage: 3RD INFUSION
     Route: 042
     Dates: start: 20221213

REACTIONS (4)
  - Herpes zoster [Recovering/Resolving]
  - Nausea [Not Recovered/Not Resolved]
  - Vomiting [Not Recovered/Not Resolved]
  - Abdominal pain [Not Recovered/Not Resolved]
